FAERS Safety Report 14191967 (Version 4)
Quarter: 2017Q4

REPORT INFORMATION
  Report Type: Spontaneous
  Country: KR (occurrence: KR)
  Receive Date: 20171115
  Receipt Date: 20171218
  Transmission Date: 20180321
  Serious: Yes (Other)
  Sender: FDA-Public Use
  Company Number: KR-009507513-1708KOR008527

PATIENT
  Age: 48 Year
  Sex: Male
  Weight: 72.8 kg

DRUGS (20)
  1. MAXIPIME [Concomitant]
     Active Substance: CEFEPIME HYDROCHLORIDE
     Dosage: 2 G, BID
     Route: 042
     Dates: start: 20170812, end: 20170820
  2. PENZAL (ACETAMINOPHEN (+) CAFFEINE (+) DEANOL TARTRATE (+) PROPYPHENAZ [Concomitant]
     Indication: HEADACHE
     Dosage: 650 MG, QD (ONCE DAILY)
     Route: 048
     Dates: start: 20170808, end: 20170808
  3. PENZAL (ACETAMINOPHEN (+) CAFFEINE (+) DEANOL TARTRATE (+) PROPYPHENAZ [Concomitant]
     Indication: FEBRILE NEUTROPENIA
     Dosage: 1300 MG, QD (ONCE DAILY)
     Route: 048
     Dates: start: 20170809, end: 20170809
  4. PENZAL (ACETAMINOPHEN (+) CAFFEINE (+) DEANOL TARTRATE (+) PROPYPHENAZ [Concomitant]
     Dosage: 1300 MG, QD (ONCE DAILY)
     Route: 048
     Dates: start: 20170822, end: 20170822
  5. NOXAFIL [Suspect]
     Active Substance: POSACONAZOLE
     Dosage: 300 MG, QD
     Route: 048
     Dates: start: 20170809, end: 20170830
  6. PENZAL (ACETAMINOPHEN (+) CAFFEINE (+) DEANOL TARTRATE (+) PROPYPHENAZ [Concomitant]
     Dosage: 2 TABLET, QD (ONCE DAILY)
     Route: 048
     Dates: start: 20170827, end: 20170830
  7. DENOGAN [Concomitant]
     Active Substance: PROPACETAMOL HYDROCHLORIDE
     Indication: FEBRILE NEUTROPENIA
     Dosage: 5 MG, QD (ONCE DAILY)
     Route: 042
     Dates: start: 20170805, end: 20170806
  8. ALLOPURINOL. [Concomitant]
     Active Substance: ALLOPURINOL
     Indication: PROPHYLAXIS
     Dosage: 200 MG, QD
     Route: 048
     Dates: start: 20170807, end: 20170814
  9. SODIUM BICARBONATE. [Concomitant]
     Active Substance: SODIUM BICARBONATE
     Indication: PROPHYLAXIS
     Dosage: 40 ML, QD; (ROUTE OF ADMINISTRATION: MIXED ON FLUID)
     Route: 042
     Dates: start: 20170808, end: 20170808
  10. KYTRIL [Concomitant]
     Active Substance: GRANISETRON HYDROCHLORIDE
     Indication: ACUTE PROMYELOCYTIC LEUKAEMIA
     Dosage: 3 MG, QD
     Route: 042
     Dates: start: 20170808, end: 20170808
  11. VESANOID [Concomitant]
     Active Substance: TRETINOIN
     Dosage: 40 MG, BID
     Route: 048
     Dates: start: 20170808
  12. MAXIPIME [Concomitant]
     Active Substance: CEFEPIME HYDROCHLORIDE
     Indication: FEBRILE NEUTROPENIA
     Dosage: 2 G, TID
     Route: 042
     Dates: start: 20170805, end: 20170811
  13. NOXAFIL [Suspect]
     Active Substance: POSACONAZOLE
     Indication: ANTIFUNGAL PROPHYLAXIS
     Dosage: 300 MG, BID
     Route: 048
     Dates: start: 20170808, end: 20170808
  14. VESANOID [Concomitant]
     Active Substance: TRETINOIN
     Indication: ACUTE PROMYELOCYTIC LEUKAEMIA
     Dosage: 30 MG, QD
     Route: 048
     Dates: start: 20170807, end: 20170807
  15. DENOGAN [Concomitant]
     Active Substance: PROPACETAMOL HYDROCHLORIDE
     Indication: PYREXIA
     Dosage: 5 ML, QD (ONCE DAILY)
     Route: 042
     Dates: start: 20170823, end: 20170823
  16. IRCODON [Concomitant]
     Active Substance: OXYCODONE HYDROCHLORIDE
     Indication: HEADACHE
     Dosage: 5 MG, PRN
     Route: 048
     Dates: start: 20170808, end: 20170820
  17. PENZAL (ACETAMINOPHEN (+) CAFFEINE (+) DEANOL TARTRATE (+) PROPYPHENAZ [Concomitant]
     Indication: PYREXIA
     Dosage: 1300 MG, PRN ON FEVER
     Route: 048
     Dates: start: 20170819, end: 20170820
  18. KYTRIL [Concomitant]
     Active Substance: GRANISETRON HYDROCHLORIDE
     Indication: NAUSEA
     Dosage: 3 MG, QD
     Route: 042
     Dates: start: 20170812, end: 20170812
  19. ZAVEDOS [Concomitant]
     Active Substance: IDARUBICIN
     Indication: ACUTE PROMYELOCYTIC LEUKAEMIA
     Dosage: 21.9 MG, ONCE PER TWO DAYS
     Route: 042
     Dates: start: 20170808, end: 20170815
  20. ALLOPURINOL. [Concomitant]
     Active Substance: ALLOPURINOL
     Dosage: 100 MG, QD
     Route: 048
     Dates: start: 20170815, end: 20170820

REACTIONS (11)
  - Thrombocytopenia [Recovered/Resolved]
  - Hypertension [Recovered/Resolved]
  - Headache [Recovered/Resolved]
  - Cancer pain [Recovered/Resolved]
  - Epigastric discomfort [Recovered/Resolved]
  - Pyrexia [Recovered/Resolved]
  - Catheter site inflammation [Recovered/Resolved]
  - Cough [Recovered/Resolved]
  - Catheter site related reaction [Recovered/Resolved]
  - Nausea [Recovered/Resolved]
  - Nausea [Recovered/Resolved]

NARRATIVE: CASE EVENT DATE: 20170808
